FAERS Safety Report 20670312 (Version 1)
Quarter: 2022Q2

REPORT INFORMATION
  Report Type: Report from Study
  Country: US (occurrence: US)
  Receive Date: 20220404
  Receipt Date: 20220404
  Transmission Date: 20220721
  Serious: Yes (Other)
  Sender: FDA-Public Use
  Company Number: US-UCBSA-2022017820

PATIENT
  Age: 0 Year
  Sex: Female
  Weight: 4.12 kg

DRUGS (12)
  1. CERTOLIZUMAB PEGOL [Suspect]
     Active Substance: CERTOLIZUMAB PEGOL
     Indication: Psoriatic arthropathy
     Dosage: 400 MILLIGRAM, EV 2 WEEKS(QOW)
     Route: 064
     Dates: start: 20200425, end: 20200523
  2. CERTOLIZUMAB PEGOL [Suspect]
     Active Substance: CERTOLIZUMAB PEGOL
     Dosage: 400 MILLIGRAM, MONTHLY (QM)
     Route: 064
     Dates: start: 20200620, end: 20210120
  3. MINERALS\VITAMINS [Concomitant]
     Active Substance: MINERALS\VITAMINS
     Indication: Product used for unknown indication
     Dosage: 2 DOSAGE FORM, ONCE DAILY (QD)
     Dates: start: 20191215, end: 20210120
  4. PREVACID [Concomitant]
     Active Substance: LANSOPRAZOLE
     Indication: Gastrooesophageal reflux disease
     Dosage: 1 DOSAGE FORM, ONCE DAILY (QD)
     Dates: start: 20201008, end: 20210120
  5. PROBIOTICS NOS [Concomitant]
     Active Substance: PROBIOTICS NOS
     Indication: Nutritional supplementation
     Dosage: 1 DOSAGE FORM, ONCE DAILY (QD)
     Dates: start: 20200401, end: 20210120
  6. TUMS [Concomitant]
     Active Substance: CALCIUM CARBONATE
     Indication: Gastrooesophageal reflux disease
     Dosage: 4.5 PILL, ONCE DAILY
     Dates: start: 20200401, end: 20200731
  7. TUMS [Concomitant]
     Active Substance: CALCIUM CARBONATE
     Dosage: 3 PILL, 2 WK
     Dates: start: 20200801, end: 20201007
  8. INFLUENZA VIRUS VACCINE [Concomitant]
     Active Substance: INFLUENZA VIRUS VACCINE
     Indication: Product used for unknown indication
     Dosage: UNK
     Dates: start: 20201008, end: 20201008
  9. TETANUS TOXOID, REDUCED DIPHTHERIA TOXOID AND ACELLULAR PERTUSSIS VACC [Concomitant]
     Active Substance: TETANUS TOXOID, REDUCED DIPHTHERIA TOXOID AND ACELLULAR PERTUSSIS VACCINE ADSORBED, TDAP
     Indication: Product used for unknown indication
     Dosage: 1 SHOT 1 DAY
     Dates: start: 20201008, end: 20201008
  10. ZINC [Concomitant]
     Active Substance: ZINC
     Indication: Acne
     Dosage: 10 MILLIGRAM, ONCE DAILY (QD)
     Dates: start: 20200401, end: 20210120
  11. FISH OIL [Concomitant]
     Active Substance: FISH OIL
     Indication: Pregnancy
     Dosage: 1200 MILLIGRAM, ONCE DAILY (QD)
     Dates: start: 20200401, end: 20210120
  12. TYLENOL [Concomitant]
     Active Substance: ACETAMINOPHEN
     Indication: Headache
     Dosage: 2 DOSAGE FORM, ONCE DAILY (QD)
     Dates: start: 20200401, end: 20200625

REACTIONS (3)
  - Factor V Leiden mutation [Unknown]
  - Postmature baby [Unknown]
  - Maternal exposure during pregnancy [Unknown]

NARRATIVE: CASE EVENT DATE: 20200425
